FAERS Safety Report 12599458 (Version 1)
Quarter: 2016Q3

REPORT INFORMATION
  Report Type: Spontaneous
  Country: US (occurrence: US)
  Receive Date: 20160727
  Receipt Date: 20160727
  Transmission Date: 20161109
  Serious: No
  Sender: FDA-Public Use
  Company Number: US-BEH-2016058683

PATIENT
  Sex: Male
  Weight: 68.4 kg

DRUGS (24)
  1. LMX [Concomitant]
     Active Substance: LIDOCAINE
  2. BACTRIM [Concomitant]
     Active Substance: SULFAMETHOXAZOLE\TRIMETHOPRIM
  3. NYSTATIN. [Concomitant]
     Active Substance: NYSTATIN
  4. SUCRALFATE. [Concomitant]
     Active Substance: SUCRALFATE
  5. METFORMIN HCL [Concomitant]
     Active Substance: METFORMIN HYDROCHLORIDE
  6. CALCIUM + VIT D3 [Concomitant]
  7. FLONASE [Concomitant]
     Active Substance: FLUTICASONE PROPIONATE
  8. XOPENEX [Concomitant]
     Active Substance: LEVALBUTEROL HYDROCHLORIDE
  9. ZEMAIRA [Suspect]
     Active Substance: .ALPHA.1-PROTEINASE INHIBITOR HUMAN
     Indication: ALPHA-1 ANTI-TRYPSIN DEFICIENCY
     Route: 042
     Dates: start: 20090602
  10. MUCINEX ER [Concomitant]
  11. DIPHENHYDRAMINE. [Concomitant]
     Active Substance: DIPHENHYDRAMINE
  12. SODIUM CHLORIDE 0.9% [Concomitant]
     Active Substance: SODIUM CHLORIDE
  13. OXYGEN. [Concomitant]
     Active Substance: OXYGEN
  14. AZELASTINE [Concomitant]
     Active Substance: AZELASTINE
  15. CIALIS [Concomitant]
     Active Substance: TADALAFIL
  16. CEFTRIAXONE. [Concomitant]
     Active Substance: CEFTRIAXONE
  17. BUDESONIDE. [Concomitant]
     Active Substance: BUDESONIDE
  18. PREDNISONE. [Concomitant]
     Active Substance: PREDNISONE
  19. PULMICORT TURBUHALER [Concomitant]
     Active Substance: BUDESONIDE
  20. SINGULAIR [Concomitant]
     Active Substance: MONTELUKAST SODIUM
  21. PROTONIX [Concomitant]
     Active Substance: PANTOPRAZOLE SODIUM
  22. ALPRAZOLAM. [Concomitant]
     Active Substance: ALPRAZOLAM
  23. EPIPEN [Concomitant]
     Active Substance: EPINEPHRINE
  24. IPRATROPIUM [Concomitant]
     Active Substance: IPRATROPIUM

REACTIONS (1)
  - Sinusitis [Unknown]
